FAERS Safety Report 8933076 (Version 2)
Quarter: 2012Q4

REPORT INFORMATION
  Report Type: 
  Country: US (occurrence: US)
  Receive Date: 20121128
  Receipt Date: 20121212
  Transmission Date: 20130627
  Serious: Yes (Hospitalization)
  Sender: FDA-Public Use
  Company Number: US-CELGENEUS-163-21880-12092657

PATIENT
  Age: 80 None
  Sex: Male

DRUGS (37)
  1. REVLIMID [Suspect]
     Indication: MULTIPLE MYELOMA
     Dosage: 10 Milligram
     Route: 048
  2. REVLIMID [Suspect]
     Dosage: 15 Milligram
     Route: 048
     Dates: start: 20100423
  3. REVLIMID [Suspect]
     Dosage: 25 Milligram
     Route: 048
     Dates: start: 201012
  4. DECADRON [Concomitant]
     Indication: MULTIPLE MYELOMA
     Dosage: 20 Milligram
     Route: 048
     Dates: start: 20100903
  5. OMEPRAZOLE [Concomitant]
     Indication: DRUG USE FOR UNKNOWN INDICATION
     Dosage: 20 Milligram
     Route: 048
     Dates: start: 20110914
  6. OMEPRAZOLE [Concomitant]
     Dosage: 40 Milligram
     Route: 048
  7. MS CONTIN [Concomitant]
     Indication: PAIN
     Dosage: 45 Milligram
     Route: 048
     Dates: start: 20101008
  8. ASPIRIN [Concomitant]
     Indication: DRUG USE FOR UNKNOWN INDICATION
     Dosage: 81 Milligram
     Route: 048
  9. COLACE [Concomitant]
     Indication: DRUG USE FOR UNKNOWN INDICATION
     Dosage: 100 Milligram
     Route: 048
  10. COUMADIN [Concomitant]
     Indication: DVT
     Dosage: 5 Milligram
     Route: 065
     Dates: start: 20110630
  11. SOTALOL [Concomitant]
     Indication: DRUG USE FOR UNKNOWN INDICATION
     Dosage: 80 Milligram
     Route: 065
  12. AMLODIPINE [Concomitant]
     Indication: DRUG USE FOR UNKNOWN INDICATION
     Dosage: 5 Milligram
     Route: 065
  13. FUROSEMIDE [Concomitant]
     Indication: DRUG USE FOR UNKNOWN INDICATION
     Dosage: 40 Milligram
     Route: 065
  14. FUROSEMIDE [Concomitant]
     Dosage: 20 Milligram
     Route: 048
  15. GLIPIZIDE XL [Concomitant]
     Indication: DIABETES MELLITUS
     Dosage: 10 Milligram
     Route: 048
     Dates: start: 20120906
  16. GLIPIZIDE XL [Concomitant]
     Dosage: 5 Milligram
     Route: 048
  17. PERCOCET [Concomitant]
     Indication: PAIN
     Dosage: 10 Milligram
     Route: 048
     Dates: start: 20110204
  18. SENNA [Concomitant]
     Indication: DRUG USE FOR UNKNOWN INDICATION
     Dosage: 2 Tablet
     Route: 065
  19. CALCIUM W/ D3 [Concomitant]
     Indication: DRUG USE FOR UNKNOWN INDICATION
     Dosage: 500
     Route: 065
  20. POTASSIUM CHLORIDE [Concomitant]
     Indication: DRUG USE FOR UNKNOWN INDICATION
     Dosage: 10 Milliequivalents
     Route: 065
     Dates: start: 20120703
  21. POTASSIUM CHLORIDE [Concomitant]
     Dosage: 10 Milliequivalents
     Route: 065
     Dates: start: 20120906
  22. MORPHINE SULFATE [Concomitant]
     Indication: PAIN
     Dosage: 1-2 tabs
     Route: 048
     Dates: end: 20100708
  23. MORPHINE SULFATE [Concomitant]
     Dosage: 2 Milligram
     Route: 041
     Dates: start: 20110617, end: 20110617
  24. MORPHINE SULFATE [Concomitant]
     Dosage: 15 Milligram
     Route: 048
     Dates: start: 20100805
  25. BETAPACE [Concomitant]
     Indication: DRUG USE FOR UNKNOWN INDICATION
     Dosage: 1 Tablet
     Route: 048
  26. ZOMETA [Concomitant]
     Indication: DRUG USE FOR UNKNOWN INDICATION
     Dosage: 3.3 mg in NS 100 mL
     Route: 041
     Dates: start: 20100513
  27. LACTULOSE [Concomitant]
     Indication: DRUG USE FOR UNKNOWN INDICATION
     Dosage: 30 milliliter
     Route: 048
     Dates: start: 20100805
  28. INFLUENZA VACCINE [Concomitant]
     Indication: DRUG USE FOR UNKNOWN INDICATION
     Dosage: .5 milliliter
     Route: 030
     Dates: start: 20110914, end: 20121004
  29. CYANOCOBALAMIN [Concomitant]
     Indication: DRUG USE FOR UNKNOWN INDICATION
     Dosage: 1000 Microgram
     Route: 030
     Dates: start: 20120920, end: 20121101
  30. MELPHALAN [Concomitant]
     Indication: DRUG USE FOR UNKNOWN INDICATION
     Dosage: 2 Milligram
     Route: 048
     Dates: start: 20110815
  31. LOVENOX [Concomitant]
     Indication: DRUG USE FOR UNKNOWN INDICATION
     Dosage: 80 mg / 0.8 mg
     Route: 058
     Dates: start: 20100809, end: 20100809
  32. ONDANSETRON HCL [Concomitant]
     Indication: DRUG USE FOR UNKNOWN INDICATION
     Dosage: 24 Milligram
     Route: 048
     Dates: start: 20110815
  33. OXYCODONE-ACETAMINOPHEN [Concomitant]
     Indication: DRUG USE FOR UNKNOWN INDICATION
     Dosage: 10-325 mg
     Route: 048
     Dates: start: 20101112
  34. PHENERGAN [Concomitant]
     Indication: DRUG USE FOR UNKNOWN INDICATION
     Dosage: 25 Milligram
     Route: 048
     Dates: start: 20110815
  35. PREDNISONE [Concomitant]
     Indication: DRUG USE FOR UNKNOWN INDICATION
     Dosage: 50 Milligram
     Route: 048
     Dates: start: 20110815
  36. CLOTRIMAZOLE [Concomitant]
     Indication: DRUG USE FOR UNKNOWN INDICATION
     Dosage: 1 lozenge
     Route: 048
  37. COMPAZINE [Concomitant]
     Indication: DRUG USE FOR UNKNOWN INDICATION
     Dosage: 10 Milligram
     Route: 048

REACTIONS (3)
  - Vitamin B12 deficiency [Recovering/Resolving]
  - Dehydration [Recovered/Resolved]
  - Renal failure acute [Recovered/Resolved]
